FAERS Safety Report 18633036 (Version 1)
Quarter: 2020Q4

REPORT INFORMATION
  Report Type: Report from Study
  Country: US (occurrence: US)
  Receive Date: 20201218
  Receipt Date: 20201218
  Transmission Date: 20210114
  Serious: Yes (Death, Other)
  Sender: FDA-Public Use
  Company Number: NVSC2020US335601

PATIENT
  Age: 78 Year
  Sex: Female

DRUGS (3)
  1. KYMRIAH [Suspect]
     Active Substance: TISAGENLECLEUCEL
     Indication: DIFFUSE LARGE B-CELL LYMPHOMA
     Dosage: UNK, ONCE/SINGLE
     Route: 041
     Dates: start: 20190919
  2. FLUDARABINE [Concomitant]
     Active Substance: FLUDARABINE PHOSPHATE
     Indication: CHEMOTHERAPY
     Dosage: UNK
     Route: 065
  3. CYCLOPHOSPHAMIDE. [Concomitant]
     Active Substance: CYCLOPHOSPHAMIDE
     Indication: CHEMOTHERAPY
     Dosage: UNK
     Route: 065

REACTIONS (17)
  - White blood cell count decreased [Unknown]
  - Confusional state [Unknown]
  - Dysphagia [Unknown]
  - Pseudomonas infection [Unknown]
  - Stenotrophomonas infection [Unknown]
  - Platelet count decreased [Unknown]
  - Leukoencephalopathy [Unknown]
  - Somnolence [Unknown]
  - Haemoglobin decreased [Unknown]
  - Neurotoxicity [Recovered/Resolved]
  - Diffuse large B-cell lymphoma recurrent [Fatal]
  - Pyrexia [Unknown]
  - Lymphocyte count decreased [Unknown]
  - Neutrophil count decreased [Unknown]
  - Haematocrit decreased [Unknown]
  - Cytokine release syndrome [Recovered/Resolved]
  - Disorientation [Unknown]
